FAERS Safety Report 17186586 (Version 2)
Quarter: 2020Q1

REPORT INFORMATION
  Report Type: Report from Study
  Country: US (occurrence: US)
  Receive Date: 20191220
  Receipt Date: 20200129
  Transmission Date: 20200409
  Serious: Yes (Hospitalization)
  Sender: FDA-Public Use
  Company Number: US-EXELIXIS-CABO-19024896

PATIENT
  Sex: Female

DRUGS (15)
  1. CABOMETYX [Suspect]
     Active Substance: CABOZANTINIB S-MALATE
     Dosage: 40 MG, QD (2 TABLETS OF CABOMETYX 20 MG)
     Route: 048
  2. IBUPROFEN. [Concomitant]
     Active Substance: IBUPROFEN
  3. PANTOPRAZOLE SODIUM. [Concomitant]
     Active Substance: PANTOPRAZOLE SODIUM
  4. CETIRIZINE HCL [Concomitant]
     Active Substance: CETIRIZINE HYDROCHLORIDE
  5. NORCO [Concomitant]
     Active Substance: ACETAMINOPHEN\HYDROCODONE BITARTRATE
  6. MEGACE [Concomitant]
     Active Substance: MEGESTROL ACETATE
  7. MODAFINIL. [Concomitant]
     Active Substance: MODAFINIL
  8. PREDNISONE. [Concomitant]
     Active Substance: PREDNISONE
  9. DOCUSATE SODIUM. [Concomitant]
     Active Substance: DOCUSATE SODIUM
  10. ESCITALOPRAM OXALATE. [Concomitant]
     Active Substance: ESCITALOPRAM OXALATE
  11. ALPRAZOLAM. [Concomitant]
     Active Substance: ALPRAZOLAM
  12. FLOVENT [Concomitant]
     Active Substance: FLUTICASONE PROPIONATE
  13. CABOMETYX [Suspect]
     Active Substance: CABOZANTINIB S-MALATE
     Indication: RENAL CANCER
     Dosage: 60 MG, (3 TABLETS OF CABOMETYX 20 MG)
     Route: 048
     Dates: start: 20190830
  14. RITALIN [Concomitant]
     Active Substance: METHYLPHENIDATE HYDROCHLORIDE
  15. PROCHLORPERAZINE MALEATE. [Concomitant]
     Active Substance: PROCHLORPERAZINE MALEATE

REACTIONS (4)
  - Asthenia [Unknown]
  - Fall [Unknown]
  - Dehydration [Unknown]
  - Diarrhoea [Unknown]
